FAERS Safety Report 16045702 (Version 4)
Quarter: 2019Q2

REPORT INFORMATION
  Report Type: Spontaneous
  Country: JP (occurrence: JP)
  Receive Date: 20190307
  Receipt Date: 20190524
  Transmission Date: 20190711
  Serious: Yes (Other)
  Sender: FDA-Public Use
  Company Number: JP-AMGEN-JPNSP2017084095

PATIENT

DRUGS (1)
  1. VECTIBIX [Suspect]
     Active Substance: PANITUMUMAB
     Indication: RECTAL CANCER
     Dosage: UNK, Q2WK (UNK MILLIGRAM/KILOGRAM, Q2WEEKS)
     Route: 050

REACTIONS (5)
  - Adverse reaction [Unknown]
  - Neutrophil count decreased [Unknown]
  - Neuropathy peripheral [Unknown]
  - Malaise [Unknown]
  - Diarrhoea [Unknown]
